FAERS Safety Report 5424670-4 (Version None)
Quarter: 2007Q3

REPORT INFORMATION
  Report Type: 
  Country: None (occurrence: None)
  Receive Date: 20070824
  Receipt Date: 20070813
  Transmission Date: 20080115
  Serious: Yes (Other)
  Sender: FDA-Public Use
  Company Number: PHHO2007MX13618

PATIENT
  Sex: Female

DRUGS (2)
  1. LAMISIL [Suspect]
     Indication: ONYCHOMYCOSIS
     Dosage: 1 TABLET / DAILY
     Route: 048
     Dates: start: 20070524
  2. MESALAZINE [Concomitant]
     Indication: ULCER

REACTIONS (2)
  - DYSPEPSIA [None]
  - GASTROINTESTINAL ULCER HAEMORRHAGE [None]
